FAERS Safety Report 13640015 (Version 1)
Quarter: 2017Q2

REPORT INFORMATION
  Report Type: Spontaneous
  Country: US (occurrence: US)
  Receive Date: 20170609
  Receipt Date: 20170609
  Transmission Date: 20170830
  Serious: No
  Sender: FDA-Public Use
  Company Number: US-ROCHE-1090571

PATIENT
  Sex: Female

DRUGS (3)
  1. TRAZODONE [Concomitant]
     Active Substance: TRAZODONE HYDROCHLORIDE
     Route: 065
     Dates: start: 20120702
  2. LITHIUM. [Concomitant]
     Active Substance: LITHIUM
  3. KLONOPIN [Suspect]
     Active Substance: CLONAZEPAM
     Indication: INSOMNIA
     Dosage: HALF A 0.5MG TABLET AT NIGHT
     Route: 048

REACTIONS (3)
  - Depression [Not Recovered/Not Resolved]
  - Depressed mood [Not Recovered/Not Resolved]
  - Memory impairment [Not Recovered/Not Resolved]
